FAERS Safety Report 5690433-8 (Version None)
Quarter: 2008Q2

REPORT INFORMATION
  Report Type: 
  Country: None (occurrence: None)
  Receive Date: 20080401
  Receipt Date: 20040330
  Transmission Date: 20081010
  Serious: Yes (Death)
  Sender: FDA-Public Use
  Company Number: US-ROCHE-351545

PATIENT
  Age: 66 Year
  Sex: Male
  Weight: 80.3 kg

DRUGS (1)
  1. PEGASYS [Suspect]
     Indication: DRUG USE FOR UNKNOWN INDICATION
     Dosage: ROUTE REPORTED AS INJ.
     Route: 042
     Dates: start: 20030813

REACTIONS (2)
  - DEATH [None]
  - RED BLOOD CELL COUNT DECREASED [None]
